FAERS Safety Report 11446421 (Version 1)
Quarter: 2015Q3

REPORT INFORMATION
  Report Type: Spontaneous
  Country: US (occurrence: US)
  Receive Date: 20150831
  Receipt Date: 20150831
  Transmission Date: 20151125
  Serious: No
  Sender: FDA-Public Use
  Company Number: US-ELI_LILLY_AND_COMPANY-US200811004094

PATIENT
  Age: 55 Year
  Sex: Female
  Weight: 131.52 kg

DRUGS (6)
  1. FELDENE [Concomitant]
     Active Substance: PIROXICAM
     Dosage: 20 MG, DAILY (1/D)
  2. CYMBALTA [Suspect]
     Active Substance: DULOXETINE HYDROCHLORIDE
     Dosage: 60 MG, UNK
     Dates: start: 20081007, end: 20081031
  3. VASOTEC [Concomitant]
     Active Substance: ENALAPRIL MALEATE
     Dosage: 20 MG, DAILY (1/D)
  4. NIACIN. [Concomitant]
     Active Substance: NIACIN
     Dosage: 1 D/F, DAILY (1/D)
  5. ZIAC [Concomitant]
     Active Substance: BISOPROLOL FUMARATE\HYDROCHLOROTHIAZIDE
     Dosage: 1 D/F, DAILY (1/D)
  6. CYMBALTA [Suspect]
     Active Substance: DULOXETINE HYDROCHLORIDE
     Indication: FIBROMYALGIA
     Dosage: 1 D/F, UNK
     Dates: start: 20080930, end: 20081006

REACTIONS (5)
  - Hallucination, visual [Recovered/Resolved]
  - Suicidal ideation [Recovered/Resolved]
  - Paranoia [Recovered/Resolved]
  - Tremor [Recovered/Resolved]
  - Hallucination, auditory [Recovered/Resolved]

NARRATIVE: CASE EVENT DATE: 20081031
